FAERS Safety Report 8934202 (Version 1)
Quarter: 2012Q4

REPORT INFORMATION
  Report Type: 
  Country: GR (occurrence: GR)
  Receive Date: 20121129
  Receipt Date: 20121129
  Transmission Date: 20130627
  Serious: Yes (Other)
  Sender: FDA-Public Use
  Company Number: GR-TEVA-372931ISR

PATIENT
  Age: 66 Year
  Sex: Male

DRUGS (2)
  1. CISPLATIN [Suspect]
     Indication: NON-SMALL CELL LUNG CANCER
     Dosage: 100 mg/m2 Daily;
     Route: 042
     Dates: start: 20120727, end: 20121026
  2. DOCETAXEL [Suspect]
     Indication: NON-SMALL CELL LUNG CANCER
     Dosage: 80 mg/m2 Daily;
     Route: 042
     Dates: start: 20120727, end: 20121026

REACTIONS (1)
  - Disease progression [Unknown]
